FAERS Safety Report 13359955 (Version 1)
Quarter: 2017Q1

REPORT INFORMATION
  Report Type: Spontaneous
  Country: US (occurrence: US)
  Receive Date: 20170322
  Receipt Date: 20170322
  Transmission Date: 20170429
  Serious: No
  Sender: FDA-Public Use
  Company Number: US-009507513-1703USA005066

PATIENT
  Age: 31 Year
  Sex: Female
  Weight: 81.63 kg

DRUGS (2)
  1. KLONOPIN [Concomitant]
     Active Substance: CLONAZEPAM
     Dosage: UNK, ONCE A MONTH
  2. NUVARING [Suspect]
     Active Substance: ETHINYL ESTRADIOL\ETONOGESTREL
     Indication: CONTRACEPTION
     Dosage: 1 RING, 3 WEEKS INSIDE THEN 1 WEEK BREAK
     Route: 067

REACTIONS (4)
  - Incorrect drug administration duration [Unknown]
  - Mood swings [Unknown]
  - Abdominal distension [Unknown]
  - Muscle spasms [Unknown]
